FAERS Safety Report 7801141-9 (Version None)
Quarter: 2011Q4

REPORT INFORMATION
  Report Type: 
  Country: None (occurrence: None)
  Receive Date: 20111007
  Receipt Date: 20110929
  Transmission Date: 20120403
  Serious: No
  Sender: FDA-Public Use
  Company Number: US-BIOGENIDEC-2011BI037517

PATIENT
  Age: 57 Year
  Sex: Female

DRUGS (2)
  1. PILL TO CONTROL BLOOD SUGAR (NOS) [Concomitant]
     Indication: BLOOD GLUCOSE
  2. TYSABRI [Suspect]
     Indication: MULTIPLE SCLEROSIS
     Route: 042
     Dates: start: 20110822

REACTIONS (1)
  - BLOOD GLUCOSE INCREASED [None]
